FAERS Safety Report 4920401-2 (Version None)
Quarter: 2006Q1

REPORT INFORMATION
  Report Type: 
  Country: None (occurrence: None)
  Receive Date: 20060223
  Receipt Date: 20051004
  Transmission Date: 20060701
  Serious: Yes (Hospitalization)
  Sender: FDA-Public Use
  Company Number: US-MERCK-0510USA03348

PATIENT
  Age: 61 Year
  Sex: Male
  Weight: 89 kg

DRUGS (22)
  1. LEVAQUIN [Concomitant]
     Indication: BACTERIAL INFECTION
     Route: 065
     Dates: start: 20011228
  2. LEVAQUIN [Concomitant]
     Route: 065
     Dates: start: 20041122
  3. METOPROLOL [Concomitant]
     Route: 065
     Dates: start: 20011228, end: 20020101
  4. NITROGLYCERIN [Concomitant]
     Indication: ANGINA PECTORIS
     Route: 065
     Dates: start: 20000104, end: 20020104
  5. NITROLINGUAL [Concomitant]
     Indication: ANGINA PECTORIS
     Route: 065
     Dates: start: 20020124, end: 20041130
  6. BECONASE [Concomitant]
     Indication: HYPERSENSITIVITY
     Route: 065
     Dates: start: 20010803, end: 20021017
  7. BETAMETHASONE DIPROPIONATE [Concomitant]
     Indication: SKIN IRRITATION
     Route: 065
     Dates: start: 20000504, end: 20030303
  8. NITROSTAT [Concomitant]
     Indication: ANGINA PECTORIS
     Route: 065
     Dates: start: 20001019
  9. PLAVIX [Concomitant]
     Indication: ANTICOAGULANT THERAPY
     Route: 065
     Dates: start: 20011228
  10. PROTONIX [Concomitant]
     Indication: GASTROOESOPHAGEAL REFLUX DISEASE
     Route: 065
     Dates: start: 20040707, end: 20050404
  11. TOPROL-XL [Concomitant]
     Route: 065
     Dates: start: 20020330, end: 20050307
  12. VANCENASE [Concomitant]
     Indication: HYPERSENSITIVITY
     Route: 065
     Dates: start: 20000403, end: 20010305
  13. ZOCOR [Concomitant]
     Indication: BLOOD CHOLESTEROL INCREASED
     Route: 048
     Dates: start: 20000104
  14. CIMETIDINE [Concomitant]
     Indication: GASTRIC DISORDER
     Route: 065
     Dates: start: 20000104, end: 20010803
  15. ACETAMINOPHEN AND HYDROCODONE BITARTRATE [Concomitant]
     Indication: PAIN
     Route: 065
     Dates: start: 20000219
  16. IBUPROFEN [Concomitant]
     Indication: ANALGESIC EFFECT
     Route: 065
     Dates: start: 20000104, end: 20010803
  17. VIOXX [Suspect]
     Indication: ARTHRITIS
     Route: 048
     Dates: start: 20000219, end: 20040930
  18. ACIPHEX [Concomitant]
     Indication: GASTROOESOPHAGEAL REFLUX DISEASE
     Route: 065
     Dates: start: 20010827, end: 20030303
  19. ALTACE [Concomitant]
     Route: 065
     Dates: start: 20011228, end: 20030401
  20. ASPIRIN [Concomitant]
     Route: 048
     Dates: start: 19990118
  21. ASPIRIN [Concomitant]
     Route: 048
     Dates: start: 20010719
  22. ASPIRIN [Concomitant]
     Route: 048
     Dates: start: 20011220

REACTIONS (22)
  - ACUTE MYOCARDIAL INFARCTION [None]
  - ARTERIOSCLEROSIS CORONARY ARTERY [None]
  - ATRIOVENTRICULAR BLOCK [None]
  - BACTERIAL INFECTION [None]
  - BLOOD GLUCOSE INCREASED [None]
  - CARDIAC ARREST [None]
  - CARDIAC FAILURE [None]
  - CORONARY ARTERY DISEASE [None]
  - DRUG INEFFECTIVE [None]
  - DYSKINESIA [None]
  - EJECTION FRACTION DECREASED [None]
  - GASTROOESOPHAGEAL REFLUX DISEASE [None]
  - HYPERSENSITIVITY [None]
  - INFLUENZA [None]
  - MYOCARDIAL INFARCTION [None]
  - POOR QUALITY DRUG ADMINISTERED [None]
  - RHEUMATOID ARTHRITIS [None]
  - SKIN IRRITATION [None]
  - SPUTUM CULTURE POSITIVE [None]
  - STAPHYLOCOCCAL INFECTION [None]
  - VENTRICULAR FIBRILLATION [None]
  - VENTRICULAR HYPERTROPHY [None]
